FAERS Safety Report 15425279 (Version 1)
Quarter: 2018Q3

REPORT INFORMATION
  Report Type: Spontaneous
  Country: JP (occurrence: JP)
  Receive Date: 20180925
  Receipt Date: 20180925
  Transmission Date: 20181010
  Serious: Yes (Disabling)
  Sender: FDA-Public Use
  Company Number: JP-SA-2018SA092001

PATIENT
  Age: 65 Year
  Sex: Female
  Weight: 52 kg

DRUGS (99)
  1. ELPLAT [Suspect]
     Active Substance: OXALIPLATIN
     Dosage: REGIMEN #3  120 MG QD
     Route: 041
     Dates: start: 20140811, end: 20140811
  2. ELPLAT [Suspect]
     Active Substance: OXALIPLATIN
     Dosage: REGIMEN  #5
     Route: 041
     Dates: start: 20140922, end: 20140922
  3. ELPLAT [Suspect]
     Active Substance: OXALIPLATIN
     Dosage: REGIMEN #7
     Route: 041
     Dates: start: 20141104, end: 20141104
  4. ELPLAT [Suspect]
     Active Substance: OXALIPLATIN
     Dosage: REGIMEN #13
     Route: 041
     Dates: start: 20150203, end: 20150203
  5. ELPLAT [Suspect]
     Active Substance: OXALIPLATIN
     Dosage: REGIMEN #16
     Route: 041
     Dates: start: 20150317, end: 20150317
  6. IRINOTECAN [Suspect]
     Active Substance: IRINOTECAN
     Dosage: REGIMEN #13
     Route: 041
     Dates: start: 20150203, end: 20150203
  7. IRINOTECAN [Suspect]
     Active Substance: IRINOTECAN
     Dosage: REGIMEN #16
     Route: 041
     Dates: start: 20150317, end: 20150317
  8. IRINOTECAN [Suspect]
     Active Substance: IRINOTECAN
     Dosage: REGIMEN #19
     Route: 041
     Dates: start: 20180522, end: 20180522
  9. CALCIUM LEVOFOLINATE [Suspect]
     Active Substance: LEVOLEUCOVORIN CALCIUM
     Dosage: REGIMEN 14
     Route: 041
     Dates: start: 20150217, end: 20150217
  10. CALCIUM LEVOFOLINATE [Suspect]
     Active Substance: LEVOLEUCOVORIN CALCIUM
     Dosage: REGIMEN 17
     Route: 041
     Dates: start: 20150414, end: 20150414
  11. CALCIUM LEVOFOLINATE [Suspect]
     Active Substance: LEVOLEUCOVORIN CALCIUM
     Dosage: REGIMEN 19
     Route: 041
     Dates: start: 20180522, end: 20180522
  12. FLUOROURACIL. [Suspect]
     Active Substance: FLUOROURACIL
     Dosage: REGIMEN 15
     Route: 041
     Dates: start: 20150303, end: 20150303
  13. FLUOROURACIL. [Suspect]
     Active Substance: FLUOROURACIL
     Dosage: REGIMEN 24
     Route: 041
     Dates: start: 20180731, end: 20180731
  14. OTHER CHEMOTHERAPEUTICS [Concomitant]
     Active Substance: UNSPECIFIED INGREDIENT
     Dosage: UNK UNK,TOTAL
     Route: 065
  15. ELPLAT [Suspect]
     Active Substance: OXALIPLATIN
     Dosage: REGIMEN #19
     Route: 041
     Dates: start: 20180605, end: 20180605
  16. ELPLAT [Suspect]
     Active Substance: OXALIPLATIN
     Dosage: REGIMEN #23
     Route: 041
     Dates: start: 20180731, end: 20180731
  17. IRINOTECAN [Suspect]
     Active Substance: IRINOTECAN
     Dosage: REGIMEN #12
     Route: 041
     Dates: start: 20150120, end: 20150120
  18. IRINOTECAN [Suspect]
     Active Substance: IRINOTECAN
     Dosage: REGIMEN #17
     Route: 041
     Dates: start: 20150414, end: 20150414
  19. IRINOTECAN [Suspect]
     Active Substance: IRINOTECAN
     Dosage: REGIMEN #24
     Route: 041
     Dates: start: 20180731, end: 20180731
  20. FLUOROURACIL. [Suspect]
     Active Substance: FLUOROURACIL
     Dosage: REGIMEN 12
     Route: 041
     Dates: start: 20150120, end: 20150120
  21. FLUOROURACIL. [Suspect]
     Active Substance: FLUOROURACIL
     Dosage: REGIMEN 19
     Route: 041
     Dates: start: 20180522, end: 20180522
  22. FLUOROURACIL. [Suspect]
     Active Substance: FLUOROURACIL
     Dosage: REGIMEN 20
     Route: 041
     Dates: start: 20180605, end: 20180605
  23. DEXART [Concomitant]
     Active Substance: DEXAMETHASONE SODIUM PHOSPHATE
     Dosage: UNK
     Dates: start: 20140728, end: 20140825
  24. GRANISETRON HYDROCHLORIDE. [Concomitant]
     Active Substance: GRANISETRON HYDROCHLORIDE
     Dosage: UNK
     Route: 065
     Dates: start: 20140728, end: 20140728
  25. ELPLAT [Suspect]
     Active Substance: OXALIPLATIN
     Dosage: REGIMEN #8
     Route: 041
     Dates: start: 20141118, end: 20141118
  26. ELPLAT [Suspect]
     Active Substance: OXALIPLATIN
     Dosage: REGIMEN #10
     Route: 041
     Dates: start: 20141216, end: 20141216
  27. ELPLAT [Suspect]
     Active Substance: OXALIPLATIN
     Dosage: REGIMEN #20
     Route: 041
     Dates: start: 20180619, end: 20180619
  28. IRINOTECAN [Suspect]
     Active Substance: IRINOTECAN
     Dosage: REGIMEN #2
     Route: 041
     Dates: start: 20140811, end: 20140811
  29. CALCIUM LEVOFOLINATE [Suspect]
     Active Substance: LEVOLEUCOVORIN CALCIUM
     Dosage: REGIMEN 2
     Route: 041
     Dates: start: 20140811, end: 20140811
  30. CALCIUM LEVOFOLINATE [Suspect]
     Active Substance: LEVOLEUCOVORIN CALCIUM
     Dosage: REGIMEN 10
     Route: 041
     Dates: start: 20141216, end: 20141216
  31. CALCIUM LEVOFOLINATE [Suspect]
     Active Substance: LEVOLEUCOVORIN CALCIUM
     Dosage: REGIMEN 15
     Route: 041
     Dates: start: 20150303, end: 20150303
  32. CALCIUM LEVOFOLINATE [Suspect]
     Active Substance: LEVOLEUCOVORIN CALCIUM
     Dosage: REGIMEN 20
     Route: 041
     Dates: start: 20180605, end: 20180605
  33. CALCIUM LEVOFOLINATE [Suspect]
     Active Substance: LEVOLEUCOVORIN CALCIUM
     Dosage: REGIMEN 24
     Route: 041
     Dates: start: 20180731, end: 20180731
  34. FLUOROURACIL. [Suspect]
     Active Substance: FLUOROURACIL
     Indication: PANCREATIC CARCINOMA
     Dosage: REGIMEN 1,942.8 MG/M2/D1?2
     Route: 041
     Dates: start: 20140728, end: 20140728
  35. FLUOROURACIL. [Suspect]
     Active Substance: FLUOROURACIL
     Dosage: REGIMEN 3
     Route: 041
     Dates: start: 20140825, end: 20140825
  36. FLUOROURACIL. [Suspect]
     Active Substance: FLUOROURACIL
     Dosage: REGIMEN 11
     Route: 041
     Dates: start: 20150106, end: 20150106
  37. FLUOROURACIL. [Suspect]
     Active Substance: FLUOROURACIL
     Dosage: REGIMEN 21
     Route: 041
     Dates: start: 20180619, end: 20180619
  38. ELPLAT [Suspect]
     Active Substance: OXALIPLATIN
     Dosage: REGIMEN #12
     Route: 041
     Dates: start: 20150120, end: 20150120
  39. IRINOTECAN [Suspect]
     Active Substance: IRINOTECAN
     Dosage: REGIMEN #6
     Route: 041
     Dates: start: 20141006, end: 20141006
  40. IRINOTECAN [Suspect]
     Active Substance: IRINOTECAN
     Dosage: REGIMEN #18
     Route: 041
     Dates: start: 20180508, end: 20180508
  41. CALCIUM LEVOFOLINATE [Suspect]
     Active Substance: LEVOLEUCOVORIN CALCIUM
     Indication: PANCREATIC CARCINOMA
     Dosage: REGIMEN 1,151.5 MG/M2
     Route: 041
     Dates: start: 20140728, end: 20140728
  42. CALCIUM LEVOFOLINATE [Suspect]
     Active Substance: LEVOLEUCOVORIN CALCIUM
     Dosage: REGIMEN 4
     Route: 041
     Dates: start: 20140908, end: 20140908
  43. CALCIUM LEVOFOLINATE [Suspect]
     Active Substance: LEVOLEUCOVORIN CALCIUM
     Dosage: REGIMEN 22
     Route: 041
     Dates: start: 20180703, end: 20180703
  44. FLUOROURACIL. [Suspect]
     Active Substance: FLUOROURACIL
     Dosage: REGIMEN 4
     Route: 041
     Dates: start: 20140908, end: 20140908
  45. FLUOROURACIL. [Suspect]
     Active Substance: FLUOROURACIL
     Dosage: REGIMEN 18
     Route: 041
     Dates: start: 20180508, end: 20180508
  46. IRINOTECAN [Suspect]
     Active Substance: IRINOTECAN
     Dosage: REGIMEN #3
     Route: 041
     Dates: start: 20140825
  47. IRINOTECAN [Suspect]
     Active Substance: IRINOTECAN
     Dosage: RGIMEN #20
     Route: 041
     Dates: start: 20180605, end: 20180605
  48. IRINOTECAN [Suspect]
     Active Substance: IRINOTECAN
     Dosage: REGIMEN #21
     Route: 041
     Dates: start: 20180619, end: 20180619
  49. CALCIUM LEVOFOLINATE [Suspect]
     Active Substance: LEVOLEUCOVORIN CALCIUM
     Dosage: REGIMEN 3
     Route: 041
     Dates: start: 20140825, end: 20140825
  50. CALCIUM LEVOFOLINATE [Suspect]
     Active Substance: LEVOLEUCOVORIN CALCIUM
     Dosage: REGIMEN 13
     Route: 041
     Dates: start: 20150203, end: 20150203
  51. CALCIUM LEVOFOLINATE [Suspect]
     Active Substance: LEVOLEUCOVORIN CALCIUM
     Dosage: REGIMEN 21
     Route: 041
     Dates: start: 20180619, end: 20180619
  52. FLUOROURACIL. [Suspect]
     Active Substance: FLUOROURACIL
     Dosage: REGIMEN 2
     Route: 041
     Dates: start: 20140811, end: 20140811
  53. FLUOROURACIL. [Suspect]
     Active Substance: FLUOROURACIL
     Dosage: REGIMEN 13
     Route: 041
     Dates: start: 20150203, end: 20150203
  54. FLUOROURACIL. [Suspect]
     Active Substance: FLUOROURACIL
     Dosage: REGIMEN 16
     Route: 041
     Dates: start: 20150317, end: 20150317
  55. DEXART [Concomitant]
     Active Substance: DEXAMETHASONE SODIUM PHOSPHATE
     Dosage: UNK
  56. ELPLAT [Suspect]
     Active Substance: OXALIPLATIN
     Indication: PANCREATIC CARCINOMA
     Dosage: 120 MG, QD
     Route: 041
     Dates: start: 20140728, end: 20140728
  57. ELPLAT [Suspect]
     Active Substance: OXALIPLATIN
     Dosage: REGIMEN #4
     Route: 041
     Dates: start: 20140908, end: 20140908
  58. ELPLAT [Suspect]
     Active Substance: OXALIPLATIN
     Dosage: REGIMEN #6
     Route: 041
     Dates: start: 20141006, end: 20141006
  59. ELPLAT [Suspect]
     Active Substance: OXALIPLATIN
     Dosage: REGIMEN # 21
     Route: 041
     Dates: start: 20180703, end: 20180703
  60. ELPLAT [Suspect]
     Active Substance: OXALIPLATIN
     Dosage: REGIMEN #22
     Route: 041
     Dates: start: 20180718, end: 20180718
  61. IRINOTECAN [Suspect]
     Active Substance: IRINOTECAN
     Dosage: REGIMEN #9
     Route: 041
     Dates: start: 20141202, end: 20141202
  62. IRINOTECAN [Suspect]
     Active Substance: IRINOTECAN
     Dosage: REGIMEN #11
     Route: 041
     Dates: start: 20150106, end: 20150106
  63. CALCIUM LEVOFOLINATE [Suspect]
     Active Substance: LEVOLEUCOVORIN CALCIUM
     Dosage: REGIMEN 5
     Route: 041
     Dates: start: 20140922, end: 20140922
  64. CALCIUM LEVOFOLINATE [Suspect]
     Active Substance: LEVOLEUCOVORIN CALCIUM
     Dosage: REGIMEN 8
     Route: 041
     Dates: start: 20141118, end: 20141118
  65. CALCIUM LEVOFOLINATE [Suspect]
     Active Substance: LEVOLEUCOVORIN CALCIUM
     Dosage: REGIMEN 9
     Route: 041
     Dates: start: 20141202, end: 20141202
  66. CALCIUM LEVOFOLINATE [Suspect]
     Active Substance: LEVOLEUCOVORIN CALCIUM
     Dosage: REGIMEN 11
     Route: 041
     Dates: start: 20150106, end: 20150106
  67. FLUOROURACIL. [Suspect]
     Active Substance: FLUOROURACIL
     Dosage: REGIMEN 6
     Route: 041
     Dates: start: 20141006, end: 20141006
  68. FLUOROURACIL. [Suspect]
     Active Substance: FLUOROURACIL
     Dosage: REGIMEN 8
     Route: 041
     Dates: start: 20141118, end: 20141118
  69. FLUOROURACIL. [Suspect]
     Active Substance: FLUOROURACIL
     Dosage: REGIMEN 9
     Route: 041
     Dates: start: 20141202, end: 20141202
  70. FLUOROURACIL. [Suspect]
     Active Substance: FLUOROURACIL
     Dosage: REGIMEN 14
     Route: 041
     Dates: start: 20150217, end: 20150217
  71. FLUOROURACIL. [Suspect]
     Active Substance: FLUOROURACIL
     Dosage: REGIMEN 23
     Route: 041
     Dates: start: 20180718, end: 20180718
  72. ELPLAT [Suspect]
     Active Substance: OXALIPLATIN
     Dosage: REGIMEN #9
     Route: 041
     Dates: start: 20141202, end: 20141202
  73. ELPLAT [Suspect]
     Active Substance: OXALIPLATIN
     Dosage: REGIMEN #11
     Route: 041
     Dates: start: 20150106, end: 20150106
  74. ELPLAT [Suspect]
     Active Substance: OXALIPLATIN
     Dosage: REGIMEN #14
     Route: 041
     Dates: start: 20150217, end: 20150217
  75. ELPLAT [Suspect]
     Active Substance: OXALIPLATIN
     Dosage: REGIMEN #15
     Route: 041
     Dates: start: 20150303, end: 20150303
  76. ELPLAT [Suspect]
     Active Substance: OXALIPLATIN
     Dosage: REGIMEN #17
     Route: 041
     Dates: start: 20180508, end: 20180508
  77. IRINOTECAN [Suspect]
     Active Substance: IRINOTECAN
     Dosage: REGIMEN #7
     Route: 041
     Dates: start: 20141104, end: 20141104
  78. IRINOTECAN [Suspect]
     Active Substance: IRINOTECAN
     Dosage: REGIMEN #8
     Route: 041
     Dates: start: 20141118, end: 20141118
  79. IRINOTECAN [Suspect]
     Active Substance: IRINOTECAN
     Dosage: REGIMEN #14
     Route: 041
     Dates: start: 20150217, end: 20150217
  80. IRINOTECAN [Suspect]
     Active Substance: IRINOTECAN
     Dosage: REGIMEN #23
     Route: 041
     Dates: start: 20180718, end: 20180718
  81. CALCIUM LEVOFOLINATE [Suspect]
     Active Substance: LEVOLEUCOVORIN CALCIUM
     Dosage: REGIMEN 6
     Route: 041
     Dates: start: 20141006, end: 20141006
  82. CALCIUM LEVOFOLINATE [Suspect]
     Active Substance: LEVOLEUCOVORIN CALCIUM
     Dosage: RTEGIMEN 7
     Route: 041
     Dates: start: 20141104, end: 20141104
  83. CALCIUM LEVOFOLINATE [Suspect]
     Active Substance: LEVOLEUCOVORIN CALCIUM
     Dosage: REGIMEN 12
     Route: 041
     Dates: start: 20150120, end: 20150120
  84. CALCIUM LEVOFOLINATE [Suspect]
     Active Substance: LEVOLEUCOVORIN CALCIUM
     Dosage: REGIMEN 16
     Route: 041
     Dates: start: 20150317, end: 20150317
  85. FLUOROURACIL. [Suspect]
     Active Substance: FLUOROURACIL
     Dosage: REGIMEN 7
     Route: 041
     Dates: start: 20141104, end: 20141104
  86. FLUOROURACIL. [Suspect]
     Active Substance: FLUOROURACIL
     Dosage: REGIMEN 22
     Route: 041
     Dates: start: 20180703, end: 20180703
  87. EMEND [APREPITANT] [Concomitant]
     Dosage: UNK
     Dates: start: 20140922, end: 20140922
  88. ELPLAT [Suspect]
     Active Substance: OXALIPLATIN
     Dosage: REGIMEN #18
     Route: 041
     Dates: start: 20180522, end: 20180522
  89. IRINOTECAN [Suspect]
     Active Substance: IRINOTECAN
     Indication: PANCREATIC CARCINOMA
     Dosage: REGIMEN #1
     Route: 041
     Dates: start: 20140728, end: 20140728
  90. IRINOTECAN [Suspect]
     Active Substance: IRINOTECAN
     Dosage: REGIMEN #4
     Route: 041
     Dates: start: 20140908
  91. IRINOTECAN [Suspect]
     Active Substance: IRINOTECAN
     Dosage: REGIMEN #5
     Route: 041
     Dates: start: 20140922, end: 20140922
  92. IRINOTECAN [Suspect]
     Active Substance: IRINOTECAN
     Dosage: REGIMEN #10
     Route: 041
     Dates: start: 20141216, end: 20141216
  93. IRINOTECAN [Suspect]
     Active Substance: IRINOTECAN
     Dosage: REGIMEN #15
     Route: 041
     Dates: start: 20150303, end: 20150303
  94. IRINOTECAN [Suspect]
     Active Substance: IRINOTECAN
     Dosage: REGIMEN #22
     Route: 041
     Dates: start: 20180703, end: 20180703
  95. CALCIUM LEVOFOLINATE [Suspect]
     Active Substance: LEVOLEUCOVORIN CALCIUM
     Dosage: REGIMEN 18
     Route: 041
     Dates: start: 20180508, end: 20180508
  96. CALCIUM LEVOFOLINATE [Suspect]
     Active Substance: LEVOLEUCOVORIN CALCIUM
     Dosage: REGIMEN 23
     Route: 041
     Dates: start: 20180718, end: 20180718
  97. FLUOROURACIL. [Suspect]
     Active Substance: FLUOROURACIL
     Dosage: REGIMEN 5
     Route: 041
     Dates: start: 20140922, end: 20140922
  98. FLUOROURACIL. [Suspect]
     Active Substance: FLUOROURACIL
     Dosage: REGIMEN 10
     Route: 041
     Dates: start: 20141216, end: 20141216
  99. FLUOROURACIL. [Suspect]
     Active Substance: FLUOROURACIL
     Dosage: REGIMEN 17
     Route: 041
     Dates: start: 20150414, end: 20150414

REACTIONS (4)
  - Pyrexia [Recovered/Resolved]
  - Hypoaesthesia [Not Recovered/Not Resolved]
  - Platelet count decreased [Recovering/Resolving]
  - Neutrophil count decreased [Recovering/Resolving]

NARRATIVE: CASE EVENT DATE: 20140907
